FAERS Safety Report 23105617 (Version 1)
Quarter: 2023Q4

REPORT INFORMATION
  Report Type: Spontaneous
  Country: US (occurrence: None)
  Receive Date: 20231023
  Receipt Date: 20231023
  Transmission Date: 20240110
  Serious: Yes (Hospitalization)
  Sender: FDA-Public Use
  Company Number: None

PATIENT
  Age: 51 Year
  Sex: Female

DRUGS (1)
  1. OXYCODONE HYDROCHLORIDE [Suspect]
     Active Substance: OXYCODONE HYDROCHLORIDE
     Dosage: OTHER QUANTITY : 1 TAB;?FREQUENCY : AS NEEDED;?
     Route: 048
     Dates: start: 20230327, end: 20230327

REACTIONS (6)
  - Dizziness [None]
  - Vomiting [None]
  - Palpitations [None]
  - Nausea [None]
  - Presyncope [None]
  - Therapy cessation [None]

NARRATIVE: CASE EVENT DATE: 20230327
